FAERS Safety Report 10886789 (Version 2)
Quarter: 2017Q1

REPORT INFORMATION
  Report Type: Spontaneous
  Country: US (occurrence: US)
  Receive Date: 20150304
  Receipt Date: 20170328
  Transmission Date: 20170428
  Serious: Yes (Hospitalization, Other)
  Sender: FDA-Public Use
  Company Number: US-SHIRE-US201501663

PATIENT
  Sex: Female

DRUGS (3)
  1. PREVACID [Concomitant]
     Active Substance: LANSOPRAZOLE
     Indication: PRODUCT USED FOR UNKNOWN INDICATION
     Dosage: UNK, UNKNOWN
     Route: 065
  2. ADDERALL [Suspect]
     Active Substance: AMPHETAMINE ASPARTATE\AMPHETAMINE SULFATE\DEXTROAMPHETAMINE SACCHARATE\DEXTROAMPHETAMINE SULFATE
     Indication: PSYCHOMOTOR HYPERACTIVITY
     Dosage: UNK, UNKNOWN
     Route: 065
  3. ADDERALL XR [Suspect]
     Active Substance: AMPHETAMINE ASPARTATE\AMPHETAMINE SULFATE\DEXTROAMPHETAMINE SACCHARATE\DEXTROAMPHETAMINE SULFATE
     Indication: PSYCHOMOTOR HYPERACTIVITY
     Dosage: UNK, UNKNOWN
     Route: 048

REACTIONS (18)
  - Tongue disorder [Not Recovered/Not Resolved]
  - Agitation [Recovering/Resolving]
  - Product quality issue [Unknown]
  - Apparent death [Unknown]
  - Suicidal ideation [Not Recovered/Not Resolved]
  - Intentional overdose [Recovering/Resolving]
  - Insomnia [Recovering/Resolving]
  - Poisoning [Unknown]
  - Tachyphrenia [Recovering/Resolving]
  - Toxicity to various agents [Recovering/Resolving]
  - Substance-induced psychotic disorder [Recovering/Resolving]
  - Visual impairment [Recovered/Resolved]
  - Product tampering [Unknown]
  - Mental disorder [Unknown]
  - Drug abuse [Recovering/Resolving]
  - Dissociation [Recovering/Resolving]
  - Aggression [Recovering/Resolving]
  - Imprisonment [Recovered/Resolved]
